FAERS Safety Report 5356310-7 (Version None)
Quarter: 2007Q2

REPORT INFORMATION
  Report Type: 
  Country: None (occurrence: None)
  Receive Date: 20070613
  Receipt Date: 20070601
  Transmission Date: 20071010
  Serious: Yes (Other)
  Sender: FDA-Public Use
  Company Number: US-PFIZER INC-2007045976

PATIENT
  Sex: Female
  Weight: 47.727 kg

DRUGS (3)
  1. CHANTIX [Suspect]
     Indication: SMOKING CESSATION THERAPY
     Dates: start: 20070407, end: 20070428
  2. ESTRADIOL [Concomitant]
  3. RITALIN [Concomitant]

REACTIONS (10)
  - ASTHMA [None]
  - COUGH [None]
  - EMPHYSEMA [None]
  - FEELING ABNORMAL [None]
  - INFLUENZA LIKE ILLNESS [None]
  - NAUSEA [None]
  - PAIN [None]
  - PULMONARY FUNCTION TEST DECREASED [None]
  - PYREXIA [None]
  - WHEEZING [None]
